FAERS Safety Report 5160082-9 (Version None)
Quarter: 2006Q4

REPORT INFORMATION
  Report Type: 
  Country: None (occurrence: None)
  Receive Date: 20061129
  Receipt Date: 20060915
  Transmission Date: 20070319
  Serious: No
  Sender: FDA-Public Use
  Company Number: US-GLAXOSMITHKLINE-A0620599A

PATIENT
  Age: 46 Year
  Sex: Female

DRUGS (6)
  1. BUPROPION HCL [Suspect]
     Indication: DEPRESSION
     Dosage: 100MG PER DAY
     Route: 048
     Dates: start: 20060901
  2. XANAX [Concomitant]
  3. SPIRONOLACTONE [Concomitant]
  4. ASPIRIN [Concomitant]
  5. FEMHRT [Concomitant]
  6. NORVASC [Concomitant]

REACTIONS (2)
  - INCREASED APPETITE [None]
  - THERAPEUTIC RESPONSE DECREASED [None]
